FAERS Safety Report 7731349-2 (Version None)
Quarter: 2011Q3

REPORT INFORMATION
  Report Type: 
  Country: None (occurrence: None)
  Receive Date: 20110906
  Receipt Date: 20110714
  Transmission Date: 20111222
  Serious: No
  Sender: FDA-Public Use
  Company Number: US-AMGEN-USASP2011036135

PATIENT
  Age: 84 Year
  Sex: Male

DRUGS (8)
  1. CALCIUM CARBONATE [Concomitant]
  2. MULTIVITAMIN                       /00097801/ [Concomitant]
  3. XGEVA [Suspect]
     Indication: METASTASES TO BONE
     Dosage: UNK
     Dates: start: 20110429
  4. VERAPAMIL [Concomitant]
  5. LIPITOR [Concomitant]
  6. ENALAPRIL MALEATE [Concomitant]
  7. HYDROCORTISONE [Concomitant]
  8. VITAMIN D [Concomitant]

REACTIONS (1)
  - DYSPNOEA EXERTIONAL [None]
